FAERS Safety Report 4595058-3 (Version None)
Quarter: 2005Q1

REPORT INFORMATION
  Report Type: 
  Country: None (occurrence: None)
  Receive Date: 20050224
  Receipt Date: 20050216
  Transmission Date: 20050727
  Serious: Yes (Hospitalization, Other)
  Sender: FDA-Public Use
  Company Number: 05-02-0252

PATIENT
  Age: 67 Year
  Sex: Female

DRUGS (2)
  1. CLOZAPINE [Suspect]
     Indication: SCHIZOAFFECTIVE DISORDER
     Dosage: 250 MG QD ORAL
     Route: 048
     Dates: start: 20040301
  2. CHEMOTHERAPY [Concomitant]

REACTIONS (1)
  - COLON CANCER [None]
